FAERS Safety Report 6572744-7 (Version None)
Quarter: 2010Q1

REPORT INFORMATION
  Report Type: 
  Country: None (occurrence: None)
  Receive Date: 20100205
  Receipt Date: 20100125
  Transmission Date: 20100710
  Serious: Yes (Hospitalization, Disabling)
  Sender: FDA-Public Use
  Company Number: PHHY2010HU02725

PATIENT
  Sex: Female

DRUGS (3)
  1. ACLASTA [Suspect]
     Indication: OSTEOPOROSIS
     Dosage: 5 MG/100 ML
     Dates: start: 20090308
  2. CIFRAN [Concomitant]
     Indication: UROGENITAL INFECTION BACTERIAL
     Dosage: UNK
  3. KLION [Concomitant]
     Indication: UROGENITAL INFECTION BACTERIAL

REACTIONS (6)
  - HYPOCALCAEMIA [None]
  - IMPAIRED WORK ABILITY [None]
  - LIMB DISCOMFORT [None]
  - PAIN IN EXTREMITY [None]
  - POLYNEUROPATHY [None]
  - URINARY TRACT INFECTION [None]
